FAERS Safety Report 4930874-7 (Version None)
Quarter: 2006Q1

REPORT INFORMATION
  Report Type: 
  Country: None (occurrence: None)
  Receive Date: 20060227
  Receipt Date: 20060215
  Transmission Date: 20060701
  Serious: Yes (Hospitalization)
  Sender: FDA-Public Use
  Company Number: 200610667GDS

PATIENT
  Age: 62 Year
  Sex: Female

DRUGS (2)
  1. SALICYLATES [Suspect]
     Indication: THROMBOSIS PROPHYLAXIS
  2. WARFARIN SODIUM [Suspect]
     Indication: THROMBOSIS PROPHYLAXIS

REACTIONS (7)
  - ACUTE PULMONARY OEDEMA [None]
  - ATRIAL FIBRILLATION [None]
  - CARDIAC FAILURE CONGESTIVE [None]
  - CONDITION AGGRAVATED [None]
  - INTRACARDIAC THROMBUS [None]
  - MITRAL VALVE INCOMPETENCE [None]
  - UPPER GASTROINTESTINAL HAEMORRHAGE [None]
